FAERS Safety Report 15693487 (Version 7)
Quarter: 2019Q4

REPORT INFORMATION
  Report Type: Report from Study
  Country: US (occurrence: US)
  Receive Date: 20181206
  Receipt Date: 20191216
  Transmission Date: 20200122
  Serious: Yes (Hospitalization, Other)
  Sender: FDA-Public Use
  Company Number: US-EMD SERONO-9051644

PATIENT
  Age: 71 Year
  Sex: Female

DRUGS (3)
  1. REBIF [Suspect]
     Active Substance: INTERFERON BETA-1A
     Route: 058
     Dates: start: 201811, end: 20181130
  2. REBIF [Suspect]
     Active Substance: INTERFERON BETA-1A
     Route: 058
     Dates: start: 20181205
  3. REBIF [Suspect]
     Active Substance: INTERFERON BETA-1A
     Indication: PRODUCT USED FOR UNKNOWN INDICATION
     Route: 058
     Dates: start: 20180913, end: 201811

REACTIONS (13)
  - Urinary tract infection [Unknown]
  - Delirium [Recovering/Resolving]
  - Gait disturbance [Recovering/Resolving]
  - Fall [Unknown]
  - Cystitis [Not Recovered/Not Resolved]
  - Clostridium difficile infection [Recovered/Resolved]
  - Kidney infection [Recovering/Resolving]
  - Aphasia [Recovering/Resolving]
  - Balance disorder [Unknown]
  - Asthenia [Recovering/Resolving]
  - Dizziness [Recovering/Resolving]
  - Dehydration [Recovered/Resolved]
  - Fatigue [Unknown]

NARRATIVE: CASE EVENT DATE: 201811
